FAERS Safety Report 5253664-7 (Version None)
Quarter: 2007Q1

REPORT INFORMATION
  Report Type: 
  Country: None (occurrence: None)
  Receive Date: 20070301
  Receipt Date: 20070219
  Transmission Date: 20070707
  Serious: Yes (Hospitalization)
  Sender: FDA-Public Use
  Company Number: NO-PFIZER INC-2007014293

PATIENT
  Sex: Male

DRUGS (4)
  1. DIFLUCAN [Suspect]
     Indication: SYSTEMIC CANDIDA
     Route: 048
  2. ARCOXIA [Suspect]
     Indication: ARTHRITIS
     Route: 048
     Dates: start: 20070116, end: 20070123
  3. IMOVANE [Concomitant]
     Route: 048
  4. TRAMADOL HCL [Concomitant]

REACTIONS (1)
  - BRADYCARDIA [None]
